FAERS Safety Report 9098590 (Version 2)
Quarter: 2013Q1

REPORT INFORMATION
  Report Type: Spontaneous
  Country: FR (occurrence: FR)
  Receive Date: 20130214
  Receipt Date: 20130326
  Transmission Date: 20140127
  Serious: Yes (Life-Threatening)
  Sender: FDA-Public Use
  Company Number: FR-PFIZER INC-2013056465

PATIENT
  Age: 76 Year
  Sex: Male

DRUGS (7)
  1. CORDARONE [Suspect]
     Indication: ARRHYTHMIA
     Dosage: 1 TABLET DAILY
     Route: 048
     Dates: start: 20121018, end: 20121114
  2. SIMVASTATIN [Suspect]
     Indication: DYSLIPIDAEMIA
     Dosage: UNK
     Route: 048
  3. BISOPROLOL FUMARATE [Suspect]
     Dosage: UNK
     Dates: start: 201210, end: 201212
  4. FUROSEMIDE [Suspect]
     Dosage: UNK
     Route: 048
     Dates: start: 201210, end: 201212
  5. PRADAXA [Suspect]
     Indication: ATRIAL TACHYCARDIA
     Dosage: UNK
     Route: 048
     Dates: start: 20121018, end: 201212
  6. KARDEGIC [Suspect]
     Dosage: UNK
     Route: 048
     Dates: start: 201210, end: 201212
  7. NIDREL [Concomitant]

REACTIONS (2)
  - Lung disorder [Recovered/Resolved]
  - Respiratory distress [Recovered/Resolved]
